FAERS Safety Report 14922659 (Version 1)
Quarter: 2018Q2

REPORT INFORMATION
  Report Type: Spontaneous
  Country: JP (occurrence: JP)
  Receive Date: 20180522
  Receipt Date: 20180522
  Transmission Date: 20180711
  Serious: Yes (Other)
  Sender: FDA-Public Use
  Company Number: JP-HORMOSAN-2017-05569

PATIENT
  Age: 52 Year
  Sex: Female

DRUGS (11)
  1. ROCURONIUM [Concomitant]
     Active Substance: ROCURONIUM BROMIDE
     Indication: HYPOTONIA
     Dosage: UNK
     Route: 065
  2. ZOTEPINE [Suspect]
     Active Substance: ZOTEPINE
     Indication: PSYCHOTIC DISORDER
     Dosage: UNK
     Route: 065
  3. QUETIAPINE. [Suspect]
     Active Substance: QUETIAPINE
     Indication: PSYCHOTIC DISORDER
     Dosage: UNK
     Route: 065
  4. PROPOFOL. [Concomitant]
     Active Substance: PROPOFOL
     Indication: ANAESTHESIA
     Dosage: UNK
     Route: 042
  5. OLANZAPINE. [Suspect]
     Active Substance: OLANZAPINE
     Indication: PSYCHOTIC DISORDER
     Dosage: UNK
     Route: 065
  6. ZONISAMIDE. [Concomitant]
     Active Substance: ZONISAMIDE
     Indication: EPILEPSY
     Route: 065
  7. PICOSULFATE [Concomitant]
     Active Substance: SODIUM PICOSULFATE
     Indication: BOWEL PREPARATION
     Dosage: UNK
     Route: 065
  8. BLONANSERIN [Suspect]
     Active Substance: BLONANSERIN
     Indication: PSYCHOTIC DISORDER
     Dosage: UNK
     Route: 065
  9. GLYCERIN                           /00200601/ [Concomitant]
     Active Substance: GLYCERIN
     Indication: BOWEL PREPARATION
     Dosage: UNK
     Route: 065
  10. REMIFENTANIL [Concomitant]
     Active Substance: REMIFENTANIL
     Indication: ANAESTHESIA
     Dosage: UNK
     Route: 042
  11. SENNOSIDE                          /00571901/ [Concomitant]
     Active Substance: SENNOSIDES A AND B
     Indication: BOWEL PREPARATION
     Dosage: UNK
     Route: 065

REACTIONS (1)
  - Neuroleptic malignant syndrome [Recovered/Resolved]
